FAERS Safety Report 6067192-2 (Version None)
Quarter: 2009Q1

REPORT INFORMATION
  Report Type: 
  Country: None (occurrence: None)
  Receive Date: 20090204
  Receipt Date: 20090204
  Transmission Date: 20090719
  Serious: Yes (Life-Threatening, Hospitalization)
  Sender: FDA-Public Use
  Company Number: None

PATIENT
  Age: 29 Year
  Sex: Female
  Weight: 58.9676 kg

DRUGS (1)
  1. YASMIN [Suspect]
     Indication: CONTRACEPTION
     Dosage: DRSP 3.0MG, ETH ESTR 0.030MG ONCE A DAY PO
     Route: 048
     Dates: start: 20050415, end: 20080620

REACTIONS (1)
  - PULMONARY EMBOLISM [None]
